FAERS Safety Report 5490476-3 (Version None)
Quarter: 2007Q4

REPORT INFORMATION
  Report Type: 
  Country: None (occurrence: None)
  Receive Date: 20071017
  Receipt Date: 20071017
  Transmission Date: 20080405
  Serious: Yes (Hospitalization)
  Sender: FDA-Public Use
  Company Number: None

PATIENT
  Age: 84 Year
  Sex: Male

DRUGS (1)
  1. ACETAZOLAMIDE [Suspect]
     Dosage: 250MG  QID  PO
     Route: 048
     Dates: start: 20070816, end: 20070821

REACTIONS (4)
  - BLOOD ELECTROLYTES ABNORMAL [None]
  - HYPOKALAEMIA [None]
  - HYPONATRAEMIA [None]
  - METABOLIC ACIDOSIS [None]
